FAERS Safety Report 7494849-9 (Version None)
Quarter: 2011Q2

REPORT INFORMATION
  Report Type: 
  Country: None (occurrence: None)
  Receive Date: 20110520
  Receipt Date: 20110511
  Transmission Date: 20111010
  Serious: Yes (Other)
  Sender: FDA-Public Use
  Company Number: US-ASTRAZENECA-2011SE28104

PATIENT
  Age: 44 Year
  Sex: Female

DRUGS (5)
  1. SEROQUEL XR [Suspect]
     Indication: BIPOLAR DISORDER
     Route: 048
  2. WELLBUTRIN [Concomitant]
  3. CLONAPINE [Concomitant]
  4. LAMICTAL [Concomitant]
  5. TRAZODONE HCL [Concomitant]

REACTIONS (1)
  - BREAST CANCER [None]
